FAERS Safety Report 4416535-1 (Version None)
Quarter: 2004Q3

REPORT INFORMATION
  Report Type: 
  Country: None (occurrence: None)
  Receive Date: 20040802
  Receipt Date: 20040720
  Transmission Date: 20050211
  Serious: Yes (Hospitalization)
  Sender: FDA-Public Use
  Company Number: MK200407-0202-1

PATIENT
  Age: 80 Year
  Sex: Female

DRUGS (3)
  1. ANAFRANIL [Suspect]
     Indication: DEPRESSION
     Dosage: 12.5 MG, DAILY
     Dates: start: 20040521, end: 20040526
  2. AMINOFLUID [Concomitant]
  3. ETIZOLAM [Concomitant]

REACTIONS (1)
  - HYPONATRAEMIA [None]
